FAERS Safety Report 5983156-9 (Version None)
Quarter: 2008Q4

REPORT INFORMATION
  Report Type: 
  Country: None (occurrence: None)
  Receive Date: 20081208
  Receipt Date: 20071207
  Transmission Date: 20090506
  Serious: No
  Sender: FDA-Public Use
  Company Number: US-BAYER-200714081BCC

PATIENT
  Age: 45 Year
  Sex: Female
  Weight: 86 kg

DRUGS (2)
  1. ALEVE-D SINUS + COLD [Suspect]
     Indication: EAR PAIN
     Route: 048
     Dates: start: 20071206, end: 20071206
  2. ALEVE-D SINUS + COLD [Suspect]
     Route: 048
     Dates: start: 20071207, end: 20071207

REACTIONS (1)
  - ANXIETY [None]
